FAERS Safety Report 19650300 (Version 1)
Quarter: 2021Q3

REPORT INFORMATION
  Report Type: Report from Study
  Country: BR (occurrence: BR)
  Receive Date: 20210802
  Receipt Date: 20210802
  Transmission Date: 20211014
  Serious: Yes (Death, Hospitalization)
  Sender: FDA-Public Use
  Company Number: NVSC2021BR173646

PATIENT
  Age: 60 Year
  Sex: Female

DRUGS (5)
  1. LORATADINE. [Concomitant]
     Active Substance: LORATADINE
     Indication: ANTIALLERGIC THERAPY
     Dosage: UNK
     Route: 048
  2. HYDROXYZINE HYDROCHLORIDE. [Concomitant]
     Active Substance: HYDROXYZINE HYDROCHLORIDE
     Indication: ANTIALLERGIC THERAPY
     Dosage: UNK
     Route: 048
  3. PREDNISONE. [Concomitant]
     Active Substance: PREDNISONE
     Indication: PLATELET DISORDER
     Dosage: UNK
     Route: 048
  4. RYDAPT [Suspect]
     Active Substance: MIDOSTAURIN
     Indication: MASTOCYTOSIS
     Dosage: 4 MG, Q12H
     Route: 048
     Dates: start: 202001, end: 202105
  5. TYLEX [Concomitant]
     Indication: ANALGESIC THERAPY
     Dosage: UNK
     Route: 048

REACTIONS (4)
  - Cardio-respiratory arrest [Fatal]
  - Gait inability [Fatal]
  - Feeding disorder [Fatal]
  - Systemic mastocytosis [Fatal]

NARRATIVE: CASE EVENT DATE: 20210529
